FAERS Safety Report 10014431 (Version 1)
Quarter: 2014Q1

REPORT INFORMATION
  Report Type: Spontaneous
  Country: US (occurrence: US)
  Receive Date: 20140317
  Receipt Date: 20140317
  Transmission Date: 20141002
  Serious: Yes (Hospitalization)
  Sender: FDA-Public Use
  Company Number: US-TEVA-468432USA

PATIENT
  Age: 65 Year
  Sex: Male

DRUGS (6)
  1. EPIRUBICIN [Suspect]
     Indication: HEPATOCELLULAR CARCINOMA
     Route: 025
  2. COLCHICINE [Concomitant]
     Indication: GOUT
     Dosage: DAILY
     Route: 065
  3. TRAMADOL [Concomitant]
     Route: 065
  4. SALBUTAMOL, IPRATROPIUM BROMIDE [Concomitant]
     Dosage: SALBUTAMOL 90MICROG/IPRATROPIUM BROMIDE 18MICROG; 2 PUFFS 3 TIMES PER DAY
     Route: 055
  5. OMEPRAZOLE [Concomitant]
     Route: 065
  6. AMLODIPINE [Concomitant]
     Dosage: 5MG DAILY
     Route: 065

REACTIONS (2)
  - Tuberculosis [Recovering/Resolving]
  - Joint tuberculosis [Recovering/Resolving]
